FAERS Safety Report 13117666 (Version 2)
Quarter: 2017Q2

REPORT INFORMATION
  Report Type: Spontaneous
  Country: JP (occurrence: JP)
  Receive Date: 20170116
  Receipt Date: 20170522
  Transmission Date: 20170830
  Serious: Yes (Hospitalization, Other)
  Sender: FDA-Public Use
  Company Number: JP-GLAXOSMITHKLINE-JP2017JPN003104

PATIENT
  Age: 35 Year
  Sex: Male
  Weight: 64 kg

DRUGS (10)
  1. LAMICTAL [Suspect]
     Active Substance: LAMOTRIGINE
     Dosage: 25 MG, BID
     Route: 048
     Dates: start: 20130122, end: 20130129
  2. DEPAKENE [Suspect]
     Active Substance: VALPROIC ACID
     Dosage: 800 MG, QD
     Dates: start: 20120829, end: 20130216
  3. DEPAKENE [Suspect]
     Active Substance: VALPROIC ACID
     Dosage: UNK
     Route: 048
     Dates: start: 20120317
  4. CONTOMIN [Concomitant]
     Active Substance: CHLORPROMAZINE
     Indication: RESTLESSNESS
     Dosage: 100 MG, PRN
     Dates: start: 20121225, end: 20130107
  5. LENDORMIN D [Concomitant]
     Active Substance: BROTIZOLAM
     Indication: SLEEP DISORDER
     Dosage: 0.25 MG, QD
     Dates: start: 20120808, end: 20130204
  6. WYPAX [Concomitant]
     Active Substance: LORAZEPAM
     Indication: ANXIETY
     Dosage: 0.5 MG, PRN
     Dates: start: 20121211, end: 20130205
  7. ROHYPNOL [Concomitant]
     Active Substance: FLUNITRAZEPAM
     Indication: INSOMNIA
     Dosage: 1 MG, PRN
     Dates: start: 20130108, end: 20130205
  8. AMOBAN [Concomitant]
     Active Substance: ZOPICLONE
     Indication: SLEEP DISORDER
     Dosage: 7.5 MG, QD
     Dates: start: 20111012, end: 20130204
  9. LAMICTAL [Suspect]
     Active Substance: LAMOTRIGINE
     Indication: BIPOLAR DISORDER
     Dosage: 25 MG, QOD
     Route: 048
     Dates: start: 20121225, end: 20130107
  10. LAMICTAL [Suspect]
     Active Substance: LAMOTRIGINE
     Dosage: 25 MG, QD
     Route: 048
     Dates: start: 20130108, end: 20130121

REACTIONS (8)
  - Hepatic function abnormal [Recovered/Resolved]
  - Generalised erythema [Unknown]
  - Drug reaction with eosinophilia and systemic symptoms [Unknown]
  - Rash [Unknown]
  - Blister [Unknown]
  - Stevens-Johnson syndrome [Unknown]
  - Drug-induced liver injury [Unknown]
  - Drug eruption [Unknown]

NARRATIVE: CASE EVENT DATE: 20130130
